FAERS Safety Report 7408251-9 (Version None)
Quarter: 2011Q2

REPORT INFORMATION
  Report Type: 
  Country: None (occurrence: None)
  Receive Date: 20110412
  Receipt Date: 20110217
  Transmission Date: 20111010
  Serious: No
  Sender: FDA-Public Use
  Company Number: A0914195A

PATIENT
  Sex: Male

DRUGS (1)
  1. JALYN [Suspect]
     Route: 048

REACTIONS (1)
  - FEELING DRUNK [None]
